FAERS Safety Report 4914168-1 (Version None)
Quarter: 2006Q1

REPORT INFORMATION
  Report Type: 
  Country: None (occurrence: None)
  Receive Date: 20060210
  Receipt Date: 20050329
  Transmission Date: 20060701
  Serious: Yes (Congenital Anomaly)
  Sender: FDA-Public Use
  Company Number: A0589938A

PATIENT
  Sex: Male
  Weight: 3.1752 kg

DRUGS (2)
  1. LAMICTAL [Suspect]
     Indication: EPILEPSY
     Dosage: 400 + 500 MG/TRANSPLAC
     Route: 064
  2. ETHANOL [Concomitant]

REACTIONS (4)
  - DRUG EXPOSURE DURING PREGNANCY [None]
  - INGUINAL HERNIA [None]
  - NERVOUS SYSTEM DISORDER [None]
  - ULTRASOUND ANTENATAL SCREEN ABNORMAL [None]
